FAERS Safety Report 10271677 (Version 3)
Quarter: 2016Q2

REPORT INFORMATION
  Report Type: Spontaneous
  Country: US (occurrence: US)
  Receive Date: 20140701
  Receipt Date: 20160621
  Transmission Date: 20160815
  Serious: No
  Sender: FDA-Public Use
  Company Number: US-SA-2013SA112627

PATIENT
  Sex: Male
  Weight: 15.01 kg

DRUGS (5)
  1. PANTHENOL/RETINOL/THIAMINE HYDROCHLORIDE/ASCORBIC ACID/ERGOCALCIFEROL/FOLIC ACID/RIBOFLAVIN/NICOTINA [Concomitant]
     Dates: start: 2010
  2. ACETAMINOPHEN. [Concomitant]
     Active Substance: ACETAMINOPHEN
     Indication: PAIN
     Dates: start: 2010
  3. CEREZYME [Suspect]
     Active Substance: IMIGLUCERASE
     Indication: FOETAL EXPOSURE TIMING UNSPECIFIED
     Route: 063
  4. CEREZYME [Suspect]
     Active Substance: IMIGLUCERASE
     Indication: EXPOSURE DURING BREAST FEEDING
     Route: 063
  5. IBUPROFEN. [Concomitant]
     Active Substance: IBUPROFEN
     Indication: PAIN
     Dates: start: 2010

REACTIONS (3)
  - Speech disorder developmental [Not Recovered/Not Resolved]
  - Exposure during pregnancy [Not Recovered/Not Resolved]
  - Exposure during breast feeding [Not Recovered/Not Resolved]

NARRATIVE: CASE EVENT DATE: 2015
